FAERS Safety Report 8793867 (Version 3)
Quarter: 2013Q2

REPORT INFORMATION
  Report Type: Report from Study
  Country: JP (occurrence: JP)
  Receive Date: 20120918
  Receipt Date: 20130402
  Transmission Date: 20140414
  Serious: Yes (Hospitalization, Other)
  Sender: FDA-Public Use
  Company Number: JP-009507513-1209JPN005762

PATIENT
  Age: 61 Year
  Sex: Female
  Weight: 51 kg

DRUGS (10)
  1. PEGINTRON [Suspect]
     Indication: CHRONIC HEPATITIS C
     Dosage: 1.5 MICROGRAM PER KILOGRAM, QW
     Route: 058
     Dates: start: 20120614, end: 20120823
  2. REBETOL [Suspect]
     Indication: CHRONIC HEPATITIS C
     Dosage: 400 MG, QD
     Route: 048
     Dates: start: 20120614, end: 20120704
  3. REBETOL [Suspect]
     Dosage: 200 MG, QD
     Route: 048
     Dates: start: 20120705, end: 20120829
  4. TELAVIC [Suspect]
     Indication: CHRONIC HEPATITIS C
     Dosage: 1500 UNK, UNK
     Route: 048
     Dates: start: 20120614, end: 20120815
  5. TELAVIC [Suspect]
     Dosage: 1000 UNK, UNK
     Route: 048
     Dates: start: 20120816, end: 20120830
  6. ALOSITOL [Suspect]
     Indication: ADVERSE EVENT
     Dosage: 100 MG, QD
     Route: 048
     Dates: start: 20120620, end: 20120808
  7. ALOSITOL [Suspect]
     Dosage: 200 MG, UNK
     Route: 048
     Dates: start: 20120809, end: 20120830
  8. GLYCYRON [Concomitant]
     Indication: CHRONIC HEPATITIS C
     Dosage: 3 DF, QD
     Route: 048
  9. JUZEN-TAIHO-TO [Concomitant]
     Indication: CHRONIC HEPATITIS C
     Dosage: 7.5 MG, QD
     Route: 048
  10. FERRUM (FERROUS FUMARATE) [Concomitant]
     Indication: ANAEMIA
     Dosage: 100 MG, QD
     Route: 048

REACTIONS (2)
  - Agranulocytosis [Recovering/Resolving]
  - Haemoglobin decreased [Recovered/Resolved]
